FAERS Safety Report 15907245 (Version 3)
Quarter: 2019Q4

REPORT INFORMATION
  Report Type: Spontaneous
  Country: US (occurrence: US)
  Receive Date: 20190204
  Receipt Date: 20191024
  Transmission Date: 20200122
  Serious: Yes (Other)
  Sender: FDA-Public Use
  Company Number: US-PFIZER INC-2019047007

PATIENT
  Age: 65 Year
  Sex: Female
  Weight: 51.97 kg

DRUGS (10)
  1. XELJANZ [Suspect]
     Active Substance: TOFACITINIB CITRATE
     Indication: RHEUMATOID ARTHRITIS
     Dosage: 5 MG, UNK
     Dates: end: 20190110
  2. NOVOLOG [Concomitant]
     Active Substance: INSULIN ASPART
     Indication: BLOOD GLUCOSE ABNORMAL
     Dosage: UNK (12 UNITS TO OVER 60 UNITS A DAY )
  3. LEVOTHYROXINE. [Concomitant]
     Active Substance: LEVOTHYROXINE
     Indication: BASEDOW^S DISEASE
     Dosage: 75 UG, DAILY
  4. PREDNISONE. [Concomitant]
     Active Substance: PREDNISONE
     Indication: RHEUMATOID ARTHRITIS
     Dosage: 2.5 MG, UNK (2.5MG TABLET THREE PER WEEK)
  5. XELJANZ [Suspect]
     Active Substance: TOFACITINIB CITRATE
     Indication: ARTHRITIS
     Dosage: 5 MG, 2X/DAY
     Route: 048
     Dates: start: 201708
  6. HYDROXYCHLOROQUINE [Concomitant]
     Active Substance: HYDROXYCHLOROQUINE
     Indication: RHEUMATOID ARTHRITIS
     Dosage: UNK (ONE TABLET ON EVEN DAYS AND ONE TABLET AND A HALF ON ODD DAYS)
  7. XELJANZ [Suspect]
     Active Substance: TOFACITINIB CITRATE
     Dosage: 5 MG, 2X/DAY
     Dates: start: 2017
  8. NORTRIPTYLINE [Concomitant]
     Active Substance: NORTRIPTYLINE
     Indication: FIBROMYALGIA
     Dosage: 80 MG, DAILY (ONE 50MG CAPSULE AND THREE 10MG CAPSULES EACH NIGHT)
  9. GABAPENTIN. [Concomitant]
     Active Substance: GABAPENTIN
     Indication: RHEUMATOID ARTHRITIS
     Dosage: 100 MG, DAILY
  10. LOSARTAN. [Concomitant]
     Active Substance: LOSARTAN
     Indication: RENAL DISORDER
     Dosage: 25 MG, 1X/DAY
     Route: 048
     Dates: start: 20190116, end: 20190128

REACTIONS (9)
  - Nail infection [Unknown]
  - Incision site inflammation [Unknown]
  - Incision site erythema [Unknown]
  - Rash [Not Recovered/Not Resolved]
  - Drug hypersensitivity [Unknown]
  - Postoperative wound infection [Not Recovered/Not Resolved]
  - Urticaria [Unknown]
  - Memory impairment [Unknown]
  - Pruritus [Unknown]

NARRATIVE: CASE EVENT DATE: 201901
